FAERS Safety Report 9513428 (Version 1)
Quarter: 2013Q3

REPORT INFORMATION
  Report Type: Spontaneous
  Country: US (occurrence: US)
  Receive Date: 20130910
  Receipt Date: 20130910
  Transmission Date: 20140515
  Serious: No
  Sender: FDA-Public Use
  Company Number: US-TARO-2012P1060895

PATIENT
  Age: 66 Year
  Sex: Male
  Weight: 86.18 kg

DRUGS (6)
  1. WARFARIN SODIUM TABLETS USP 2MG [Suspect]
     Route: 048
     Dates: start: 2009, end: 20120924
  2. WARFARIN SODIUM TABLETS USP 5MG [Suspect]
     Route: 048
     Dates: start: 2009, end: 20120924
  3. COUMADIN [Suspect]
     Dates: start: 20120924
  4. AVAPRO [Concomitant]
     Dates: start: 2002
  5. MELATONIN [Concomitant]
  6. SIMVASTATIN [Concomitant]
     Route: 048
     Dates: start: 2009

REACTIONS (4)
  - International normalised ratio decreased [Recovered/Resolved]
  - Gingival bleeding [Not Recovered/Not Resolved]
  - Contusion [Not Recovered/Not Resolved]
  - Product substitution issue [Recovered/Resolved]
